FAERS Safety Report 5471574-7 (Version None)
Quarter: 2007Q3

REPORT INFORMATION
  Report Type: 
  Country: None (occurrence: None)
  Receive Date: 20070928
  Receipt Date: 20070122
  Transmission Date: 20080115
  Serious: No
  Sender: FDA-Public Use
  Company Number: US-BRISTOL-MYERS SQUIBB COMPANY-13650536

PATIENT
  Age: 51 Year
  Sex: Female
  Weight: 104 kg

DRUGS (8)
  1. DEFINITY [Suspect]
     Indication: STRESS ECHOCARDIOGRAM
  2. HYDROCHLOROTHIAZIDE [Concomitant]
  3. NORVASC [Concomitant]
  4. TOPROL-XL [Concomitant]
  5. REQUIP [Concomitant]
  6. TOLMETIN SODIUM [Concomitant]
  7. RANITIDINE HCL [Concomitant]
  8. KLOR-CON [Concomitant]

REACTIONS (1)
  - RASH [None]
